FAERS Safety Report 5424652-2 (Version None)
Quarter: 2007Q3

REPORT INFORMATION
  Report Type: 
  Country: None (occurrence: None)
  Receive Date: 20070824
  Receipt Date: 20070817
  Transmission Date: 20080115
  Serious: Yes (Other)
  Sender: FDA-Public Use
  Company Number: PHEH2006US10949

PATIENT
  Age: 67 Year
  Sex: Female
  Weight: 52.154 kg

DRUGS (8)
  1. ESTRACE [Suspect]
     Indication: MENOPAUSAL SYMPTOMS
  2. PROVERA [Suspect]
     Indication: MENOPAUSAL SYMPTOMS
  3. PREMARIN [Suspect]
     Indication: MENOPAUSAL SYMPTOMS
  4. ESTRADERM [Suspect]
     Indication: MENOPAUSAL SYMPTOMS
     Route: 062
  5. ESTRATEST [Suspect]
  6. PROVENTIL [Concomitant]
  7. BECLOVENT [Concomitant]
  8. VANCENASE [Concomitant]

REACTIONS (13)
  - BIOPSY BREAST [None]
  - BREAST CANCER IN SITU [None]
  - EPISTAXIS [None]
  - LYMPHOEDEMA [None]
  - MASSAGE [None]
  - MASTECTOMY [None]
  - NASAL POLYPS [None]
  - OESTROGEN RECEPTOR ASSAY POSITIVE [None]
  - OSTEOPOROSIS [None]
  - PROGESTERONE RECEPTOR ASSAY POSITIVE [None]
  - PYELOPLASTY [None]
  - SEBORRHOEIC KERATOSIS [None]
  - URETERIC OBSTRUCTION [None]
